FAERS Safety Report 21020331 (Version 1)
Quarter: 2022Q2

REPORT INFORMATION
  Report Type: Spontaneous
  Country: PL (occurrence: PL)
  Receive Date: 20220628
  Receipt Date: 20220628
  Transmission Date: 20220721
  Serious: Yes (Other)
  Sender: FDA-Public Use
  Company Number: PL-MYLANLABS-2022M1038395

PATIENT
  Age: 19 Year
  Sex: Male

DRUGS (21)
  1. RISPERDAL [Suspect]
     Active Substance: RISPERIDONE
     Indication: Product used for unknown indication
     Dosage: 37.5 MG/2 WEEKS
     Route: 065
  2. RISPERDAL CONSTA [Suspect]
     Active Substance: RISPERIDONE
     Indication: Schizophrenia
     Route: 065
  3. RISPERDAL CONSTA [Suspect]
     Active Substance: RISPERIDONE
     Dosage: 4 MILLIGRAM, QD (START DATE: BETWEEN 2016-2017)
     Route: 065
  4. RISPERDAL CONSTA [Suspect]
     Active Substance: RISPERIDONE
  5. RISPERDAL CONSTA [Suspect]
     Active Substance: RISPERIDONE
  6. FLUOXETINE HYDROCHLORIDE [Suspect]
     Active Substance: FLUOXETINE HYDROCHLORIDE
     Indication: Schizophrenia
     Dosage: 20 MG, DAILY
     Route: 065
     Dates: start: 201910
  7. OLANZAPINE [Suspect]
     Active Substance: OLANZAPINE
     Indication: Schizophrenia
     Dosage: 5 MG, DAILY
     Route: 065
     Dates: start: 201910, end: 201911
  8. OLANZAPINE [Suspect]
     Active Substance: OLANZAPINE
     Dosage: 20 MG, DAILY
     Route: 065
     Dates: start: 201909
  9. OLANZAPINE [Suspect]
     Active Substance: OLANZAPINE
     Dosage: 10 MG, DAILY
     Route: 065
     Dates: start: 201909, end: 201910
  10. OLANZAPINE [Suspect]
     Active Substance: OLANZAPINE
     Dosage: 10 MG, DAILY
     Route: 065
     Dates: start: 2020
  11. OLANZAPINE [Suspect]
     Active Substance: OLANZAPINE
     Dosage: UNK UNK, QD (START DATE: BETWEEN 2016-2017)(UPTO 20 MG/DAY)
     Route: 065
     Dates: start: 201909, end: 201910
  12. PREGABALIN [Suspect]
     Active Substance: PREGABALIN
     Indication: Product used for unknown indication
     Route: 065
     Dates: start: 201909
  13. PREGABALIN [Suspect]
     Active Substance: PREGABALIN
     Route: 065
  14. PREGABALIN [Suspect]
     Active Substance: PREGABALIN
     Route: 065
     Dates: start: 201910
  15. ARIPIPRAZOLE [Suspect]
     Active Substance: ARIPIPRAZOLE
     Indication: Schizophrenia
     Dosage: 15 MILLIGRAM, QD (START DATE: BETWEEN 2016-2017)
     Route: 065
  16. SERTRALINE [Suspect]
     Active Substance: SERTRALINE HYDROCHLORIDE
     Indication: Schizophrenia
     Dosage: UNK UNK, QD (UPTO 200 MG/DAY) (START DATE: BETWEEN 2016-2017
     Route: 065
  17. CLOMIPRAMINE [Suspect]
     Active Substance: CLOMIPRAMINE
     Indication: Schizophrenia
     Dosage: 75 MILLIGRAM, QD (START DATE: BETWEEN 2016-2017)
     Route: 065
  18. CARIPRAZINE [Suspect]
     Active Substance: CARIPRAZINE
     Indication: Schizophrenia
     Route: 065
  19. CARIPRAZINE [Suspect]
     Active Substance: CARIPRAZINE
     Route: 065
     Dates: start: 2019
  20. CARIPRAZINE [Suspect]
     Active Substance: CARIPRAZINE
     Route: 065
     Dates: start: 201911, end: 2019
  21. LEVOMEPROMAZINE [Suspect]
     Active Substance: LEVOMEPROMAZINE
     Indication: Schizophrenia
     Dosage: 50 MILLIGRAM, QD (START DATE: BETWEEN 2016-2017)
     Route: 065

REACTIONS (3)
  - Drug ineffective [Unknown]
  - Obsessive-compulsive symptom [Unknown]
  - Negative symptoms in schizophrenia [Recovering/Resolving]

NARRATIVE: CASE EVENT DATE: 20191001
